FAERS Safety Report 8478472-5 (Version None)
Quarter: 2012Q2

REPORT INFORMATION
  Report Type: 
  Country: None (occurrence: None)
  Receive Date: 20120629
  Receipt Date: 20120621
  Transmission Date: 20120825
  Serious: Yes (Hospitalization, Other)
  Sender: FDA-Public Use
  Company Number: US-ASTELLAS-2012US005489

PATIENT
  Sex: Male
  Weight: 86 kg

DRUGS (1)
  1. ERLOTINIB HYDROCHLORIDE [Suspect]
     Indication: NON-SMALL CELL LUNG CANCER
     Dosage: 150 MG, UID/QD
     Route: 048
     Dates: start: 20120401

REACTIONS (5)
  - GAIT DISTURBANCE [None]
  - WEIGHT DECREASED [None]
  - AMNESIA [None]
  - AGRAPHIA [None]
  - ENCEPHALOPATHY [None]
